FAERS Safety Report 4615781-1 (Version None)
Quarter: 2005Q1

REPORT INFORMATION
  Report Type: 
  Country: None (occurrence: None)
  Receive Date: 20050317
  Receipt Date: 20050302
  Transmission Date: 20050727
  Serious: Yes (Death)
  Sender: FDA-Public Use
  Company Number: 2005S1000924

PATIENT
  Age: 46 Year
  Sex: Male

DRUGS (3)
  1. CLOZAPINE [Suspect]
     Dosage: 600 MG; HS; PO
     Route: 048
     Dates: start: 20031008
  2. TIAGABINE HYDROCHLORIDE [Concomitant]
  3. PAROXETINE HCL [Concomitant]

REACTIONS (1)
  - CONVULSION [None]
